FAERS Safety Report 8797277 (Version 2)
Quarter: 2012Q4

REPORT INFORMATION
  Report Type: 
  Country: FI (occurrence: FI)
  Receive Date: 20120920
  Receipt Date: 20120924
  Transmission Date: 20130627
  Serious: Yes (Death, Hospitalization, Other)
  Sender: FDA-Public Use
  Company Number: FI-JNJFOC-20120907018

PATIENT

DRUGS (8)
  1. DOXORUBICIN [Suspect]
     Indication: MANTLE CELL LYMPHOMA
     Dosage: on day 3 in R-CHOP regimen; day 1 in CHOP regimen
     Route: 042
  2. RITUXIMAB [Suspect]
     Indication: MANTLE CELL LYMPHOMA
     Dosage: day 1 (in R-CHOP, R-AraC and in R-Fludara-AraC therapies)
     Route: 042
  3. CYCLOPHOSPHAMIDE [Suspect]
     Indication: MANTLE CELL LYMPHOMA
     Dosage: day 3 in R-CHOP and day 1 CHOP therapy
     Route: 042
  4. VINCRISTINE [Suspect]
     Indication: MANTLE CELL LYMPHOMA
     Dosage: (maximum dose of 2mg) day 3 in R-CHOP and day 1 CHOP therapy
     Route: 042
  5. PREDNISOLONE [Suspect]
     Indication: MANTLE CELL LYMPHOMA
     Dosage: days 3 to 7 in R-CHOP and days 1-5 in CHOP therapy
     Route: 048
  6. CYTARABINE [Suspect]
     Indication: MANTLE CELL LYMPHOMA
     Dosage: 3hr infusion, 4 doses with 12hr intervals on days 3-4 (R-AraC); days  2-3 (R-Fludara-AraC)
     Route: 042
  7. FLUDARABINE [Suspect]
     Indication: MANTLE CELL LYMPHOMA
     Dosage: 4 hours before last cytarabine on days 2-3 (R-Fludara-AraC therapy)
     Route: 042
  8. G-CSF [Concomitant]
     Indication: PRODUCT USED FOR UNKNOWN INDICATION
     Route: 065

REACTIONS (13)
  - Mantle cell lymphoma [Fatal]
  - Adverse event [Unknown]
  - Febrile neutropenia [Unknown]
  - Herpes virus infection [Unknown]
  - Toxicity to various agents [Unknown]
  - Neutropenia [Unknown]
  - Lymphoma [Unknown]
  - Gastrointestinal toxicity [Unknown]
  - Hepatotoxicity [Unknown]
  - Nephropathy toxic [Unknown]
  - Infection [Unknown]
  - Dizziness [Unknown]
  - Fatigue [Unknown]
